FAERS Safety Report 9096556 (Version 1)
Quarter: 2013Q1

REPORT INFORMATION
  Report Type: Report from Study
  Country: FR (occurrence: FR)
  Receive Date: 20130211
  Receipt Date: 20130211
  Transmission Date: 20140127
  Serious: Yes (Death)
  Sender: FDA-Public Use
  Company Number: PHHO2013FR002059

PATIENT
  Sex: 0

DRUGS (2)
  1. AFINITOR [Suspect]
     Indication: ACUTE MYELOID LEUKAEMIA
     Dosage: UNK MG, UNK
  2. PLATELETS, CONCENTRATED [Concomitant]

REACTIONS (1)
  - Cerebral haemorrhage [Fatal]
